FAERS Safety Report 21729208 (Version 1)
Quarter: 2022Q4

REPORT INFORMATION
  Report Type: Report from Study
  Country: US (occurrence: US)
  Receive Date: 20221214
  Receipt Date: 20221214
  Transmission Date: 20230113
  Serious: No
  Sender: FDA-Public Use
  Company Number: US-ABBVIE-4198101

PATIENT
  Sex: Male

DRUGS (2)
  1. HUMIRA [Suspect]
     Active Substance: ADALIMUMAB
     Indication: Colitis ulcerative
     Route: 058
     Dates: end: 2022
  2. HUMIRA [Suspect]
     Active Substance: ADALIMUMAB
     Dosage: EVENT ONSET FOR PATIENT TOOK HUMIRA EVERY TEN DAYS INSTEAD OF EVERY 14 DAYS: 2022
     Route: 058
     Dates: start: 2022

REACTIONS (1)
  - Intentional product misuse [Recovered/Resolved]
